FAERS Safety Report 17752416 (Version 1)
Quarter: 2020Q2

REPORT INFORMATION
  Report Type: Report from Study
  Country: None (occurrence: DE)
  Receive Date: 20200506
  Receipt Date: 20200506
  Transmission Date: 20200714
  Serious: Yes (Death)
  Sender: FDA-Public Use
  Company Number: DE-ABBVIE-20K-062-3393487-00

PATIENT
  Age: 72 Year
  Sex: Male

DRUGS (1)
  1. DUODOPA [Suspect]
     Active Substance: CARBIDOPA\LEVODOPA
     Indication: PARKINSON^S DISEASE
     Dosage: MD 5ML, CRD 2ML/H, ED 0ML
     Route: 050
     Dates: start: 201907

REACTIONS (1)
  - Death [Fatal]

NARRATIVE: CASE EVENT DATE: 20200501
